FAERS Safety Report 12905974 (Version 1)
Quarter: 2016Q4

REPORT INFORMATION
  Report Type: Spontaneous
  Country: US (occurrence: US)
  Receive Date: 20161103
  Receipt Date: 20161103
  Transmission Date: 20170207
  Serious: No
  Sender: FDA-Public Use
  Company Number: PHHY2016US151302

PATIENT
  Age: 62 Year
  Sex: Female

DRUGS (1)
  1. CAMBIA [Suspect]
     Active Substance: DICLOFENAC POTASSIUM
     Indication: MIGRAINE WITHOUT AURA
     Dosage: 50 MG, UNK (1 PACKET, WITH 1-2 OUNCES OF WATER)
     Route: 048
     Dates: start: 20160915, end: 20161031

REACTIONS (1)
  - Drug ineffective [Unknown]

NARRATIVE: CASE EVENT DATE: 2016
